FAERS Safety Report 13807345 (Version 1)
Quarter: 2017Q3

REPORT INFORMATION
  Report Type: Spontaneous
  Country: SI (occurrence: SI)
  Receive Date: 20170728
  Receipt Date: 20170728
  Transmission Date: 20171127
  Serious: Yes (Other)
  Sender: FDA-Public Use
  Company Number: SI-BAYER-2017-139894

PATIENT
  Age: 73 Year
  Sex: Male

DRUGS (4)
  1. STIVARGA [Suspect]
     Active Substance: REGORAFENIB
     Dosage: 120 MG, UNK
     Dates: start: 201702, end: 201704
  2. STIVARGA [Suspect]
     Active Substance: REGORAFENIB
     Dosage: 80 MG, UNK
     Dates: start: 201610
  3. STIVARGA [Suspect]
     Active Substance: REGORAFENIB
     Dosage: 160 MG, UNK
     Dates: start: 201701
  4. STIVARGA [Suspect]
     Active Substance: REGORAFENIB
     Dosage: 120 MG, UNK
     Dates: start: 201611

REACTIONS (3)
  - Fatigue [None]
  - Metastases to peritoneum [None]
  - Decreased appetite [None]

NARRATIVE: CASE EVENT DATE: 201702
